FAERS Safety Report 7594028-0 (Version None)
Quarter: 2011Q3

REPORT INFORMATION
  Report Type: 
  Country: None (occurrence: None)
  Receive Date: 20110706
  Receipt Date: 20110627
  Transmission Date: 20111222
  Serious: Yes (Congenital Anomaly)
  Sender: FDA-Public Use
  Company Number: DE-PFIZER INC-2011040761

PATIENT

DRUGS (7)
  1. LYRICA [Concomitant]
     Dosage: UNK
     Route: 064
     Dates: start: 20090101
  2. ATARAX [Suspect]
     Dosage: 25 MG, UNK
     Route: 064
     Dates: start: 20090501
  3. LIDOCAINE [Suspect]
     Dosage: UNK
     Route: 064
     Dates: start: 20090501
  4. ESCITALOPRAM OXALATE [Suspect]
     Dosage: UNK
     Route: 064
     Dates: start: 20090501
  5. MYOLASTAN [Concomitant]
     Dosage: UNK
     Route: 064
     Dates: start: 20090101
  6. PROPOFAN [Concomitant]
     Dosage: UNK
     Route: 064
  7. FOLIC ACID [Concomitant]
     Dosage: UNK
     Route: 064
     Dates: start: 20090101

REACTIONS (4)
  - MATERNAL EXPOSURE DURING PREGNANCY [None]
  - SPINA BIFIDA [None]
  - ARNOLD-CHIARI MALFORMATION [None]
  - TALIPES [None]
